FAERS Safety Report 4620196-6 (Version None)
Quarter: 2005Q1

REPORT INFORMATION
  Report Type: 
  Country: None (occurrence: None)
  Receive Date: 20050328
  Receipt Date: 20050207
  Transmission Date: 20050727
  Serious: Yes (Disabling, Other)
  Sender: FDA-Public Use
  Company Number: PT-AMGEN-UK111995

PATIENT
  Sex: Male
  Weight: 82.8 kg

DRUGS (3)
  1. ARANESP [Suspect]
     Indication: RENAL FAILURE CHRONIC
     Route: 058
     Dates: start: 20040101
  2. PLAVIX [Concomitant]
     Route: 048
     Dates: start: 20041001
  3. IRBESARTAN [Concomitant]
     Route: 048
     Dates: start: 20050101

REACTIONS (2)
  - ANAEMIA [None]
  - ANTI-ERYTHROPOIETIN ANTIBODY POSITIVE [None]
